FAERS Safety Report 24862335 (Version 2)
Quarter: 2025Q1

REPORT INFORMATION
  Report Type: Spontaneous
  Country: US (occurrence: US)
  Receive Date: 20250120
  Receipt Date: 20250123
  Transmission Date: 20250408
  Serious: No
  Sender: PFIZER
  Company Number: US-PFIZER INC-PV202300145065

PATIENT
  Age: 77 Year
  Sex: Female
  Weight: 83.9 kg

DRUGS (3)
  1. BOSULIF [Suspect]
     Active Substance: BOSUTINIB MONOHYDRATE
     Indication: Chronic myeloid leukaemia
     Dosage: 200 MG, DAILY
     Route: 048
  2. BOSULIF [Suspect]
     Active Substance: BOSUTINIB MONOHYDRATE
     Dosage: 100 MG, DAILY
     Route: 048
  3. BOSULIF [Suspect]
     Active Substance: BOSUTINIB MONOHYDRATE
     Dosage: 100 MG, DAILY, (1 TABLET EVERY DAY, SWALLOW WHOLE DO NOT BREAK TABLET, TAKE WITH FOOD)
     Route: 048

REACTIONS (3)
  - White blood cell count increased [Unknown]
  - Hyperlipidaemia [Unknown]
  - Oedema [Unknown]

NARRATIVE: CASE EVENT DATE: 20250101
